FAERS Safety Report 4424878-0 (Version None)
Quarter: 2004Q3

REPORT INFORMATION
  Report Type: 
  Country: None (occurrence: None)
  Receive Date: 20040809
  Receipt Date: 20040727
  Transmission Date: 20050211
  Serious: Yes (Hospitalization, Other)
  Sender: FDA-Public Use
  Company Number: HQWYE622229JUL04

PATIENT
  Age: 37 Year
  Sex: Male

DRUGS (3)
  1. RAPAMUNE [Suspect]
     Indication: IMMUNOSUPPRESSANT DRUG THERAPY
     Dosage: 2 MG 1X PER 1 DAY
     Route: 048
     Dates: start: 20040609
  2. TACROLIMUS (TACROLIMUS,     ) [Suspect]
     Indication: IMMUNOSUPPRESSANT DRUG THERAPY
     Dosage: 10 MG 1X PER 1 DAY
     Route: 048
     Dates: start: 20040609
  3. PREDNISONE TAB [Concomitant]

REACTIONS (3)
  - BLOOD CREATINE INCREASED [None]
  - FOOD INTERACTION [None]
  - THERAPEUTIC AGENT TOXICITY [None]
